FAERS Safety Report 13761659 (Version 1)
Quarter: 2017Q3

REPORT INFORMATION
  Report Type: Spontaneous
  Country: FR (occurrence: FR)
  Receive Date: 20170718
  Receipt Date: 20170718
  Transmission Date: 20171127
  Serious: Yes (Other)
  Sender: FDA-Public Use
  Company Number: FR-AUROBINDO-AUR-APL-2015-01012

PATIENT
  Age: 82 Year
  Sex: Female

DRUGS (3)
  1. RILMENIDINE ARROW 1MG [Suspect]
     Active Substance: RILMENIDINE
     Indication: HYPERTENSION
     Dosage: 2 MG, DAILY (1 MG IN MORNING, 1 MG IN EVENING)
     Route: 048
  2. VALSARTAN ARROW [Suspect]
     Active Substance: VALSARTAN
     Indication: HYPERTENSION
     Dosage: UNK
     Route: 048
  3. VALSARTAN AND HYDROCHLOROTHIAZIDE [Suspect]
     Active Substance: HYDROCHLOROTHIAZIDE\VALSARTAN
     Indication: HYPERTENSION
     Dosage: UNK
     Route: 048

REACTIONS (14)
  - Pain [Unknown]
  - Muscle disorder [Not Recovered/Not Resolved]
  - Dyspnoea [Unknown]
  - Blood sodium decreased [Unknown]
  - Dizziness [Unknown]
  - Myalgia [Unknown]
  - Blood pressure increased [Not Recovered/Not Resolved]
  - Poor quality sleep [Unknown]
  - Blood pressure abnormal [Unknown]
  - Tinnitus [Unknown]
  - Tremor [Unknown]
  - Vertigo [Not Recovered/Not Resolved]
  - Anal sphincter atony [Unknown]
  - Headache [Unknown]
